FAERS Safety Report 11864732 (Version 1)
Quarter: 2015Q4

REPORT INFORMATION
  Report Type: Spontaneous
  Country: US (occurrence: US)
  Receive Date: 20151223
  Receipt Date: 20151223
  Transmission Date: 20160305
  Serious: No
  Sender: FDA-Public Use
  Company Number: US-MEDA-2015120011

PATIENT

DRUGS (1)
  1. AEROSPAN [Suspect]
     Active Substance: FLUNISOLIDE

REACTIONS (1)
  - Vomiting [Unknown]
